FAERS Safety Report 15937669 (Version 2)
Quarter: 2019Q1

REPORT INFORMATION
  Report Type: Spontaneous
  Country: US (occurrence: US)
  Receive Date: 20190208
  Receipt Date: 20190329
  Transmission Date: 20190417
  Serious: No
  Sender: FDA-Public Use
  Company Number: US-ASTRAZENECA-2019SE05983

PATIENT
  Age: 3866 Week
  Sex: Male
  Weight: 72.6 kg

DRUGS (1)
  1. SYMBICORT [Suspect]
     Active Substance: BUDESONIDE\FORMOTEROL FUMARATE DIHYDRATE
     Indication: CHRONIC OBSTRUCTIVE PULMONARY DISEASE
     Dosage: 160/ 4.5 , 2 INHALATIONS , TWO TIMES A DAY
     Route: 055

REACTIONS (5)
  - Memory impairment [Unknown]
  - Intentional device misuse [Unknown]
  - Muscle spasms [Unknown]
  - Product dose omission [Unknown]
  - Device issue [Unknown]

NARRATIVE: CASE EVENT DATE: 20190106
